FAERS Safety Report 8917629 (Version 4)
Quarter: 2013Q2

REPORT INFORMATION
  Report Type: Spontaneous
  Country: US (occurrence: US)
  Receive Date: 20121120
  Receipt Date: 20130501
  Transmission Date: 20140414
  Serious: Yes (Other)
  Sender: FDA-Public Use
  Company Number: US-TEVA-367881USA

PATIENT
  Age: 31 Year
  Sex: Female
  Weight: 45.4 kg

DRUGS (11)
  1. COPAXONE [Suspect]
     Indication: MULTIPLE SCLEROSIS
     Route: 058
     Dates: start: 20101001, end: 20120815
  2. AMPYRA [Suspect]
     Indication: MULTIPLE SCLEROSIS
     Dosage: Q 12 HRS
     Route: 048
     Dates: start: 20120629, end: 20120726
  3. VITAMIN D [Concomitant]
     Dates: start: 201004
  4. FOLIC ACID [Concomitant]
     Dates: start: 20120901
  5. ASPIRIN [Concomitant]
     Dates: start: 20120901
  6. PRENATAL VITAMINS [Concomitant]
     Dates: start: 20120901
  7. COLACE [Concomitant]
     Dates: start: 20121219
  8. DHA [Concomitant]
     Dates: start: 20120901
  9. MAKENA [Concomitant]
     Dosage: .1429 ML DAILY;
     Dates: start: 20121114
  10. PROCARDIA [Concomitant]
     Dates: start: 20121213
  11. BETAMETHASONE [Concomitant]
     Indication: MATERNAL THERAPY TO ENHANCE FOETAL LUNG MATURITY

REACTIONS (8)
  - Angioedema [Recovered/Resolved]
  - Chronic spontaneous urticaria [Recovered/Resolved]
  - Mechanical urticaria [Recovered/Resolved]
  - Dermatitis [Recovered/Resolved]
  - Skin lesion [Recovered/Resolved]
  - Eye swelling [Recovered/Resolved]
  - Premature delivery [Unknown]
  - Placental infarction [Unknown]
